FAERS Safety Report 16967226 (Version 1)
Quarter: 2019Q4

REPORT INFORMATION
  Report Type: Spontaneous
  Country: FR (occurrence: FR)
  Receive Date: 20191028
  Receipt Date: 20191028
  Transmission Date: 20200122
  Serious: Yes (Hospitalization, Other)
  Sender: FDA-Public Use
  Company Number: FR-SA-2019SA295612

PATIENT
  Age: 68 Year
  Sex: Female

DRUGS (6)
  1. ZOLPIDEM TARTRATE. [Suspect]
     Active Substance: ZOLPIDEM TARTRATE
     Dosage: 14 DF, TOTAL
     Route: 048
     Dates: start: 20171107, end: 20171107
  2. BROMAZEPAM [Suspect]
     Active Substance: BROMAZEPAM
     Dosage: 30 DF, TOTAL
     Route: 048
     Dates: start: 20171107, end: 20171107
  3. DOXYLAMINE SUCCINATE. [Suspect]
     Active Substance: DOXYLAMINE SUCCINATE
     Dosage: 10 DF, TOTAL
     Route: 048
     Dates: start: 20171107, end: 20171107
  4. PANTOPRAZOLE [Suspect]
     Active Substance: PANTOPRAZOLE
     Dosage: 10 DF, TOTAL
     Route: 048
     Dates: start: 20171107, end: 20171107
  5. PAROXETINE HYDROCHLORIDE. [Suspect]
     Active Substance: PAROXETINE HYDROCHLORIDE
     Dosage: 52 DF, TOTAL
     Route: 048
     Dates: start: 20171107, end: 20171107
  6. VALPROMIDE [Suspect]
     Active Substance: VALPROMIDE
     Dosage: 38 DF, TOTAL
     Route: 048
     Dates: start: 20171107, end: 20171107

REACTIONS (4)
  - Overdose [Unknown]
  - Fall [Recovered/Resolved with Sequelae]
  - Drug abuse [Unknown]
  - Rhabdomyolysis [Recovered/Resolved]

NARRATIVE: CASE EVENT DATE: 20171107
